FAERS Safety Report 8541709-8 (Version None)
Quarter: 2012Q3

REPORT INFORMATION
  Report Type: 
  Country: None (occurrence: None)
  Receive Date: 20120726
  Receipt Date: 20120723
  Transmission Date: 20120928
  Serious: Yes (Other)
  Sender: FDA-Public Use
  Company Number: CHPA2012US014718

PATIENT
  Age: 62 Year
  Sex: Male

DRUGS (5)
  1. INSULIN [Concomitant]
  2. ANTIHYPERTENSIVES [Concomitant]
     Indication: HYPERTENSION
  3. DRUG THERAPY NOS [Concomitant]
     Indication: CROHN'S DISEASE
  4. VOLTAREN [Suspect]
     Indication: ARTHRITIS
     Dosage: 2 G, QID
     Route: 061
  5. ASPIRIN [Concomitant]
     Dosage: 81 MG, UNK

REACTIONS (4)
  - CATARACT [None]
  - THERAPEUTIC RESPONSE UNEXPECTED [None]
  - OFF LABEL USE [None]
  - DRUG ADMINISTERED AT INAPPROPRIATE SITE [None]
